FAERS Safety Report 14869802 (Version 1)
Quarter: 2018Q2

REPORT INFORMATION
  Report Type: Spontaneous
  Country: US (occurrence: US)
  Receive Date: 20180509
  Receipt Date: 20180509
  Transmission Date: 20180711
  Serious: No
  Sender: FDA-Public Use
  Company Number: US-SHIRE-US201817171

PATIENT
  Age: 68 Year
  Sex: Female
  Weight: 71.66 kg

DRUGS (1)
  1. XIIDRA [Suspect]
     Active Substance: LIFITEGRAST
     Indication: DRY EYE
     Dosage: UNK UNK, 2X/DAY:BID
     Route: 047
     Dates: start: 201804, end: 20180426

REACTIONS (6)
  - Vision blurred [Recovered/Resolved]
  - Visual impairment [Recovered/Resolved]
  - Xanthopsia [Recovered/Resolved]
  - Anxiety [Recovered/Resolved]
  - Instillation site reaction [Recovered/Resolved]
  - Halo vision [Recovered/Resolved]

NARRATIVE: CASE EVENT DATE: 20180426
